FAERS Safety Report 9680967 (Version 2)
Quarter: 2014Q1

REPORT INFORMATION
  Report Type: Spontaneous
  Country: US (occurrence: US)
  Receive Date: 20131111
  Receipt Date: 20140307
  Transmission Date: 20141002
  Serious: Yes (Hospitalization, Other)
  Sender: FDA-Public Use
  Company Number: US-ABBVIE-13P-163-1166327-00

PATIENT
  Age: 60 Year
  Sex: Female
  Weight: 75.36 kg

DRUGS (17)
  1. HUMIRA [Suspect]
     Indication: RHEUMATOID ARTHRITIS
     Dates: end: 201010
  2. HERCEPTIN [Suspect]
     Indication: BREAST CANCER
  3. DAPSONE [Suspect]
     Indication: PRODUCT USED FOR UNKNOWN INDICATION
  4. CELEBREX [Concomitant]
     Indication: RHEUMATOID ARTHRITIS
  5. METHOTREXATE [Concomitant]
     Indication: RHEUMATOID ARTHRITIS
     Dates: end: 20121108
  6. EFFEXOR [Concomitant]
     Indication: DEPRESSION
  7. FOSAMAX [Concomitant]
     Indication: PRODUCT USED FOR UNKNOWN INDICATION
  8. FOLIC ACID [Concomitant]
     Indication: PRODUCT USED FOR UNKNOWN INDICATION
  9. LIPITOR [Concomitant]
     Indication: BLOOD CHOLESTEROL INCREASED
  10. TRAMADOL [Concomitant]
     Indication: PAIN
  11. AMBIEN [Concomitant]
     Indication: INSOMNIA
  12. MULTIVITAMIN [Concomitant]
     Indication: VITAMIN SUPPLEMENTATION
  13. ACETAPHETAMINE [Concomitant]
     Indication: RHEUMATOID ARTHRITIS
  14. VITAMIN D [Concomitant]
     Indication: VITAMIN D DEFICIENCY
  15. CALCIUM [Concomitant]
     Indication: BONE DISORDER
  16. VITAMIN C [Concomitant]
     Indication: VITAMIN SUPPLEMENTATION
  17. STOOL SOFTENER [Concomitant]
     Indication: CONSTIPATION
     Dosage: AS NEEDED

REACTIONS (21)
  - VIIth nerve paralysis [Unknown]
  - Invasive ductal breast carcinoma [Recovering/Resolving]
  - Infectious mononucleosis [Recovered/Resolved]
  - Hypoaesthesia [Unknown]
  - Hypotonia [Unknown]
  - Back pain [Unknown]
  - Sarcoidosis [Recovering/Resolving]
  - Intervertebral disc protrusion [Unknown]
  - Hypoaesthesia [Not Recovered/Not Resolved]
  - Hypoaesthesia [Not Recovered/Not Resolved]
  - Hypoaesthesia [Not Recovered/Not Resolved]
  - Hearing impaired [Recovered/Resolved]
  - Eye disorder [Recovering/Resolving]
  - Papilloedema [Recovering/Resolving]
  - Cardiac disorder [Unknown]
  - Thrombosis [Recovered/Resolved]
  - Dyspnoea [Recovered/Resolved]
  - Arthritis [Not Recovered/Not Resolved]
  - Fatigue [Recovered/Resolved]
  - Vomiting [Recovered/Resolved]
  - Oxygen saturation decreased [Recovered/Resolved]
